FAERS Safety Report 23882939 (Version 1)
Quarter: 2024Q2

REPORT INFORMATION
  Report Type: Spontaneous
  Country: GB (occurrence: GB)
  Receive Date: 20240522
  Receipt Date: 20240522
  Transmission Date: 20240716
  Serious: Yes (Other)
  Sender: FDA-Public Use
  Company Number: GB-ABBVIE-5760091

PATIENT
  Age: 19 Year
  Sex: Male
  Weight: 60 kg

DRUGS (2)
  1. UPADACITINIB [Suspect]
     Active Substance: UPADACITINIB
     Indication: Gastrointestinal disorder
     Route: 048
     Dates: start: 20230615, end: 202309
  2. UPADACITINIB [Suspect]
     Active Substance: UPADACITINIB
     Indication: Gastrointestinal disorder
     Dosage: MAINTENANCE DOSE
     Route: 048
     Dates: start: 202309

REACTIONS (1)
  - Thrombosis in device [Unknown]

NARRATIVE: CASE EVENT DATE: 20240423
